FAERS Safety Report 17235595 (Version 1)
Quarter: 2020Q1

REPORT INFORMATION
  Report Type: Spontaneous
  Country: US (occurrence: US)
  Receive Date: 20200106
  Receipt Date: 20200106
  Transmission Date: 20200409
  Serious: No
  Sender: FDA-Public Use
  Company Number: US-AUROBINDO-AUR-APL-2019-000275

PATIENT
  Age: 53 Year
  Sex: Female
  Weight: 82 kg

DRUGS (3)
  1. MINOCYCLINE HYDROCHLORIDE EXTENDED-RELEASE TABLETS 90MG [Suspect]
     Active Substance: MINOCYCLINE HYDROCHLORIDE
     Indication: ACNE
     Dosage: 1 TABLET ONCE DAILY
     Route: 048
     Dates: start: 20170608
  2. ADAPALENE. [Suspect]
     Active Substance: ADAPALENE
     Indication: ACNE
     Dosage: UNK
     Route: 065
  3. BENZEPRO [Suspect]
     Active Substance: BENZOYL PEROXIDE
     Indication: ACNE
     Dosage: ONCE DAILY
     Route: 065

REACTIONS (1)
  - Therapeutic product effect incomplete [Recovered/Resolved]
